FAERS Safety Report 6223681-9 (Version None)
Quarter: 2009Q2

REPORT INFORMATION
  Report Type: 
  Country: None (occurrence: None)
  Receive Date: 20090611
  Receipt Date: 20090306
  Transmission Date: 20091009
  Serious: No
  Sender: FDA-Public Use
  Company Number: US-ABBOTT-08P-163-0478782-00

PATIENT
  Sex: Female
  Weight: 104.42 kg

DRUGS (14)
  1. HUMIRA [Suspect]
     Indication: RHEUMATOID ARTHRITIS
     Route: 050
  2. HUMIRA [Suspect]
     Indication: OSTEOARTHRITIS
     Dates: start: 20080801
  3. PIROXICAM [Concomitant]
     Indication: ARTHRITIS
     Route: 048
  4. NEXIUM [Concomitant]
     Indication: GASTRIC DISORDER
     Route: 048
  5. METFORMIN HYDROCHLORIDE [Concomitant]
     Indication: DIABETES MELLITUS
     Route: 048
  6. METHOTREXATE [Concomitant]
     Indication: RHEUMATOID ARTHRITIS
     Route: 048
  7. FOLIC ACID [Concomitant]
     Indication: VITAMIN SUPPLEMENTATION
     Route: 048
  8. ESTRATEST [Concomitant]
     Indication: HORMONE REPLACEMENT THERAPY
     Route: 048
  9. BUPROPION HCL [Concomitant]
     Indication: DEPRESSION
     Route: 048
  10. ELAVIL [Concomitant]
     Indication: DEPRESSION
     Route: 048
  11. ACTOS [Concomitant]
     Indication: DIABETES MELLITUS
     Route: 048
  12. HYDROCODONE BITARTRATE [Concomitant]
     Indication: PAIN
     Route: 048
  13. SERTRALINE HCL [Concomitant]
     Indication: DEPRESSION
     Route: 048
  14. CHANTIX [Concomitant]
     Indication: EX-TOBACCO USER

REACTIONS (2)
  - HERPES ZOSTER [None]
  - PROCEDURAL COMPLICATION [None]
